FAERS Safety Report 10211343 (Version 2)
Quarter: 2014Q2

REPORT INFORMATION
  Report Type: Report from Study
  Country: JP (occurrence: JP)
  Receive Date: 20140602
  Receipt Date: 20140624
  Transmission Date: 20141212
  Serious: Yes (Life-Threatening)
  Sender: FDA-Public Use
  Company Number: JP-GLAXOSMITHKLINE-B0998495A

PATIENT
  Age: 25 Year
  Sex: Female
  Weight: 50 kg

DRUGS (13)
  1. LAMICTAL [Suspect]
     Indication: TONIC CONVULSION
     Dosage: 7MG PER DAY
     Route: 048
     Dates: start: 20131107, end: 20131117
  2. LAMICTAL [Suspect]
     Indication: TONIC CONVULSION
     Dosage: 7MG TWICE PER DAY
     Route: 048
     Dates: start: 20131118, end: 20140313
  3. LAMICTAL [Suspect]
     Indication: TONIC CONVULSION
     Dosage: 9.5MG TWICE PER DAY
     Route: 048
     Dates: start: 20140314, end: 20140423
  4. AFINITOR [Suspect]
     Route: 048
  5. DEPAKENE [Concomitant]
     Indication: TONIC CONVULSION
     Route: 048
  6. RIVOTRIL [Concomitant]
     Indication: TONIC CONVULSION
     Route: 048
  7. E KEPPRA [Concomitant]
     Indication: TONIC CONVULSION
     Route: 048
  8. CORTRIL [Concomitant]
     Route: 048
  9. MAGNESIUM OXIDE [Concomitant]
     Route: 048
  10. BIOFERMIN [Concomitant]
     Route: 048
  11. TELEMINSOFT [Concomitant]
     Indication: CONSTIPATION
     Route: 054
  12. THYRADIN S [Concomitant]
     Route: 048
  13. L-CARTIN [Concomitant]
     Route: 048

REACTIONS (2)
  - Septic shock [Recovering/Resolving]
  - Cholecystitis infective [Recovering/Resolving]
